FAERS Safety Report 5427181-5 (Version None)
Quarter: 2007Q3

REPORT INFORMATION
  Report Type: 
  Country: None (occurrence: None)
  Receive Date: 20070828
  Receipt Date: 20070820
  Transmission Date: 20080115
  Serious: Yes (Other)
  Sender: FDA-Public Use
  Company Number: FR-JNJFOC-20070504172

PATIENT
  Age: 41 Year
  Sex: Female
  Weight: 80 kg

DRUGS (8)
  1. REMICADE [Suspect]
     Route: 042
  2. REMICADE [Suspect]
     Route: 042
  3. REMICADE [Suspect]
     Indication: CROHN'S DISEASE
     Dosage: 12 INFUSIONS
     Route: 042
  4. REMICADE [Suspect]
     Indication: ANKYLOSING SPONDYLITIS
     Route: 042
  5. ATACAND [Concomitant]
     Indication: CARDIOMYOPATHY
     Route: 048
  6. CARDENSIEL [Concomitant]
     Indication: CARDIOMYOPATHY
     Route: 048
  7. ETHINYL ESTRADIOL AND LEVONORGESTREL [Concomitant]
  8. URSOLVAN [Concomitant]
     Route: 048

REACTIONS (8)
  - CARDIOMYOPATHY [None]
  - CHEST DISCOMFORT [None]
  - ERYTHEMA [None]
  - HOT FLUSH [None]
  - HYPOTENSION [None]
  - INFUSION RELATED REACTION [None]
  - OXYGEN SATURATION DECREASED [None]
  - SENSE OF OPPRESSION [None]
